FAERS Safety Report 7284483-8 (Version None)
Quarter: 2011Q1

REPORT INFORMATION
  Report Type: 
  Country: None (occurrence: None)
  Receive Date: 20110209
  Receipt Date: 20110202
  Transmission Date: 20110831
  Serious: Yes (Other)
  Sender: FDA-Public Use
  Company Number: US-RB-020192-11

PATIENT
  Age: 26 Year
  Sex: Female

DRUGS (1)
  1. SUBOXONE [Suspect]
     Indication: PRODUCT USED FOR UNKNOWN INDICATION
     Dosage: DOSING INFORMATION UNKNOWN
     Route: 065

REACTIONS (12)
  - LOSS OF CONSCIOUSNESS [None]
  - DYSPNOEA [None]
  - AGITATION [None]
  - PAIN [None]
  - ABDOMINAL DISCOMFORT [None]
  - ANXIETY [None]
  - SUBSTANCE ABUSE [None]
  - ANGER [None]
  - MALAISE [None]
  - DRUG DEPENDENCE [None]
  - INTENTIONAL DRUG MISUSE [None]
  - EMOTIONAL DISORDER [None]
